FAERS Safety Report 7039765-1 (Version None)
Quarter: 2010Q3

REPORT INFORMATION
  Report Type: 
  Country: None (occurrence: None)
  Receive Date: 20100929
  Receipt Date: 20100712
  Transmission Date: 20110219
  Serious: No
  Sender: FDA-Public Use
  Company Number: US-WYE-H16506410

PATIENT
  Age: 57 Year
  Sex: Female
  Weight: 70.37 kg

DRUGS (5)
  1. PRISTIQ [Suspect]
     Indication: ANXIETY
     Dosage: ONE TABLET DAILY
     Dates: start: 20100601
  2. PRISTIQ [Suspect]
     Indication: DEPRESSION
     Dosage: ONE TABLET DAILY
     Dates: start: 20100601
  3. SYNTHROID [Concomitant]
  4. ASCORBIC ACID [Concomitant]
  5. VITAMIN B (VITAMIN B) [Concomitant]

REACTIONS (3)
  - CONDITION AGGRAVATED [None]
  - PRURITUS [None]
  - URTICARIA [None]
